FAERS Safety Report 7740160 (Version 8)
Quarter: 2013Q1

REPORT INFORMATION
  Report Type: Spontaneous
  Country: US (occurrence: None)
  Receive Date: 20101124
  Receipt Date: 20121105
  Transmission Date: 20140127
  Serious: Yes (Hospitalization, Other)
  Sender: FDA-Public Use
  Company Number: 85732

PATIENT
  Age: 45 Year
  Sex: Male
  Weight: 74 kg

DRUGS (1)
  1. ETOPOSIDE [Suspect]
     Indication: NON-SMALL CELL LUNG CANCER
     Dates: start: 20090622, end: 20090724

REACTIONS (12)
  - Thrombophlebitis [None]
  - Oesophagitis [None]
  - Leukopenia [None]
  - Neutropenia [None]
  - Laryngitis [None]
  - Vomiting [None]
  - Dysphagia [None]
  - Varicose vein [None]
  - Hypertension [None]
  - Nausea [None]
  - Cough [None]
  - Dyspnoea [None]
